FAERS Safety Report 6709867-5 (Version None)
Quarter: 2010Q2

REPORT INFORMATION
  Report Type: 
  Country: None (occurrence: None)
  Receive Date: 20100503
  Receipt Date: 20100503
  Transmission Date: 20101027
  Serious: Yes (Other)
  Sender: FDA-Public Use
  Company Number: None

PATIENT
  Sex: Female
  Weight: 33.5662 kg

DRUGS (4)
  1. CHILDREN'S TYLENOL PLUS COLD [Suspect]
     Indication: NASOPHARYNGITIS
     Dosage: 2TSP EVERY 4 HRS PO
     Route: 048
     Dates: start: 20100429, end: 20100501
  2. CHILDREN'S TYLENOL PLUS COLD [Suspect]
     Indication: VIRAL INFECTION
     Dosage: 2TSP EVERY 4 HRS PO
     Route: 048
     Dates: start: 20100429, end: 20100501
  3. CHILDREN'S TYLENOL PLUS COLD [Suspect]
  4. CHILDREN'S MOTRIN [Suspect]

REACTIONS (6)
  - DISTURBANCE IN ATTENTION [None]
  - NAUSEA [None]
  - PRODUCT QUALITY ISSUE [None]
  - PYREXIA [None]
  - SOMNOLENCE [None]
  - VOMITING [None]
